FAERS Safety Report 4606952-9 (Version None)
Quarter: 2005Q1

REPORT INFORMATION
  Report Type: 
  Country: None (occurrence: None)
  Receive Date: 20050309
  Receipt Date: 20050224
  Transmission Date: 20050727
  Serious: No
  Sender: FDA-Public Use
  Company Number: HQWYE610925FEB05

PATIENT
  Age: 49 Year
  Sex: Female
  Weight: 69.01 kg

DRUGS (4)
  1. PREMARIN [Suspect]
     Indication: ATROPHY
     Dosage: ^SMALL AMOUNT TWICE WEEKLY^' VAGINAL
     Route: 067
     Dates: start: 20050103
  2. ESTROGEN REPLACEMENT THERAPY (ESTROGEN REPLACEMENT THERAPY) [Concomitant]
  3. ACCUPRIL [Concomitant]
  4. QVAR (BECLOMETASONE DIPROPIONATE) [Concomitant]

REACTIONS (4)
  - CONDITION AGGRAVATED [None]
  - CONFUSIONAL STATE [None]
  - DIZZINESS [None]
  - VENTRICULAR EXTRASYSTOLES [None]
